FAERS Safety Report 24990972 (Version 4)
Quarter: 2025Q2

REPORT INFORMATION
  Report Type: Spontaneous
  Country: US (occurrence: US)
  Receive Date: 20250220
  Receipt Date: 20250424
  Transmission Date: 20250717
  Serious: No
  Sender: PFIZER
  Company Number: US-PFIZER INC-PV202400166923

PATIENT
  Age: 10 Year
  Sex: Female

DRUGS (4)
  1. GENOTROPIN [Suspect]
     Active Substance: SOMATROPIN
     Indication: Hypopituitarism
     Dosage: ALTERNATE EVERY OTHER DAY BETWEEN 1 MG AND 1.2 MG FOR AVERAGE DAILY DOSE OF 1.1 MG
  2. GENOTROPIN [Suspect]
     Active Substance: SOMATROPIN
     Indication: Growth hormone deficiency
     Dosage: ALTERNATE EVERY OTHER DAY BETWEEN 1 MG AND 1.2 MG FOR AVERAGE DAILY DOSE OF 1.1 MG
  3. GENOTROPIN [Suspect]
     Active Substance: SOMATROPIN
     Indication: Short stature
     Dosage: 1.0MG ALTERNATING WITH 1.2MG
  4. GENOTROPIN [Suspect]
     Active Substance: SOMATROPIN
     Dosage: 1.0MG ALTERNATING WITH 1.2MG

REACTIONS (4)
  - Device leakage [Unknown]
  - Injection site discharge [Unknown]
  - Drug dose omission by device [Unknown]
  - Device physical property issue [Unknown]
